FAERS Safety Report 4428626-X (Version None)
Quarter: 2004Q3

REPORT INFORMATION
  Report Type: 
  Country: None (occurrence: None)
  Receive Date: 20040818
  Receipt Date: 20030714
  Transmission Date: 20050211
  Serious: No
  Sender: FDA-Public Use
  Company Number: US-BRISTOL-MYERS SQUIBB COMPANY-12324794

PATIENT
  Age: 72 Year
  Sex: Female
  Weight: 67 kg

DRUGS (10)
  1. TEQUIN [Suspect]
     Indication: BRONCHITIS
     Route: 048
     Dates: start: 20030630, end: 20030630
  2. TEQUIN [Suspect]
     Indication: INFECTED INSECT BITE
     Route: 048
     Dates: start: 20030630, end: 20030630
  3. TEQUIN [Suspect]
     Indication: DIVERTICULITIS
     Route: 048
     Dates: start: 20030630, end: 20030630
  4. ASPIRIN [Concomitant]
  5. ZOCOR [Concomitant]
  6. MULTI-VITAMIN [Concomitant]
  7. VITAMIN B-12 [Concomitant]
  8. VITAMIN B6 [Concomitant]
  9. CALCIUM [Concomitant]
  10. MULTIVITAMIN [Concomitant]

REACTIONS (3)
  - DIZZINESS [None]
  - NAUSEA [None]
  - SOMNOLENCE [None]
